FAERS Safety Report 10289993 (Version 1)
Quarter: 2014Q3

REPORT INFORMATION
  Report Type: Spontaneous
  Country: US (occurrence: None)
  Receive Date: 20140707
  Receipt Date: 20140707
  Transmission Date: 20150326
  Serious: Yes (Hospitalization)
  Sender: FDA-Public Use
  Company Number: None

PATIENT
  Age: 73 Year
  Sex: Female
  Weight: 60 kg

DRUGS (1)
  1. SUTENT [Suspect]
     Active Substance: SUNITINIB MALATE
     Dates: start: 20140421, end: 20140615

REACTIONS (5)
  - Chromaturia [None]
  - Dysuria [None]
  - Neutropenia [None]
  - Urinary tract infection [None]
  - Herpes zoster [None]

NARRATIVE: CASE EVENT DATE: 20140616
